FAERS Safety Report 4611885-8 (Version None)
Quarter: 2005Q2

REPORT INFORMATION
  Report Type: 
  Country: None (occurrence: None)
  Receive Date: 20050308
  Receipt Date: 20040927
  Transmission Date: 20051028
  Serious: Yes (Other)
  Sender: FDA-Public Use
  Company Number: 2004UW22938

PATIENT
  Age: 58 Year
  Sex: Male
  Weight: 87.0906 kg

DRUGS (6)
  1. CRESTOR [Suspect]
     Indication: BLOOD CHOLESTEROL INCREASED
     Dosage: 10 MG DAILY PO
     Route: 048
  2. CRESTOR [Suspect]
     Indication: CORONARY ARTERY DISEASE
     Dosage: 10 MG DAILY PO
     Route: 048
  3. WELLBUTRIN [Concomitant]
  4. PAXIL [Concomitant]
  5. PLAVIX [Concomitant]
  6. LOPRESSOR [Concomitant]

REACTIONS (4)
  - AURA [None]
  - HEADACHE [None]
  - TINNITUS [None]
  - VERTIGO [None]
